FAERS Safety Report 12930012 (Version 1)
Quarter: 2016Q4

REPORT INFORMATION
  Report Type: Spontaneous
  Country: US (occurrence: US)
  Receive Date: 20161110
  Receipt Date: 20161110
  Transmission Date: 20170207
  Serious: Yes (Hospitalization)
  Sender: FDA-Public Use
  Company Number: US-IMPAX LABORATORIES, INC-2016-IPXL-01505

PATIENT
  Age: 66 Year
  Sex: Male
  Weight: 84 kg

DRUGS (2)
  1. RYTARY [Suspect]
     Active Substance: CARBIDOPA\LEVODOPA
     Indication: PARKINSON^S DISEASE
     Dosage: ONE CAPSULE, THREE TIMES A DAY
     Route: 048
     Dates: start: 20160816
  2. AZILECT [Concomitant]
     Active Substance: RASAGILINE MESYLATE
     Indication: PARKINSON^S DISEASE
     Dosage: 0.5 MG, 1 /DAY
     Route: 065

REACTIONS (3)
  - Brain oedema [Unknown]
  - Coordination abnormal [Unknown]
  - Speech disorder [Unknown]

NARRATIVE: CASE EVENT DATE: 20161028
